FAERS Safety Report 9620165 (Version 3)
Quarter: 2013Q4

REPORT INFORMATION
  Report Type: Report from Study
  Country: JP (occurrence: JP)
  Receive Date: 20131014
  Receipt Date: 20131029
  Transmission Date: 20140711
  Serious: Yes (Death, Other)
  Sender: FDA-Public Use
  Company Number: JP-TAKEDA-TCI2013A06111

PATIENT
  Age: 92 Year
  Sex: Male
  Weight: 41 kg

DRUGS (3)
  1. ALOGLIPTIN [Suspect]
     Indication: TYPE 2 DIABETES MELLITUS
     Dosage: 12.5 MG, QD
     Route: 048
     Dates: start: 20121025, end: 20121208
  2. ECARD COMBINATION TABLETS HD [Concomitant]
     Dosage: 1 DF, QD
     Route: 048
  3. FUROSEMIDE [Concomitant]
     Route: 048

REACTIONS (1)
  - Cardiac failure [Fatal]
